FAERS Safety Report 10661200 (Version 1)
Quarter: 2014Q4

REPORT INFORMATION
  Report Type: Spontaneous
  Country: SI (occurrence: SI)
  Receive Date: 20141218
  Receipt Date: 20141218
  Transmission Date: 20150529
  Serious: Yes (Other)
  Sender: FDA-Public Use
  Company Number: SI-CIPLA LTD.-2014SI02570

PATIENT

DRUGS (4)
  1. GEMCITABINE [Suspect]
     Active Substance: GEMCITABINE\GEMCITABINE HYDROCHLORIDE
     Indication: NON-SMALL CELL LUNG CANCER
     Dosage: 1250 MG/M2 DAY 1 AND DAY 4, CYCLE WAS REPEATED ON DAY 22
  2. CISPLATIN. [Suspect]
     Active Substance: CISPLATIN
     Indication: NON-SMALL CELL LUNG CANCER
     Dosage: 75 MG/M2, WITH APPROPRIATE HYDRATION AND ANTIEMETICS AND CYCLE WAS REPEATED ON DAY 22
  3. ERLOTINIB [Suspect]
     Active Substance: ERLOTINIB
     Indication: NON-SMALL CELL LUNG CANCER
     Dosage: 150 MG DAILY FROM DAYS 5-15 AND CYCLE WAS REPEATED ON DAY 22
  4. ANTIEMETICS [Concomitant]
     Active Substance: UNSPECIFIED INGREDIENT
     Indication: ANTIEMETIC SUPPORTIVE CARE

REACTIONS (1)
  - Embolism [Unknown]
